FAERS Safety Report 5456923-8 (Version None)
Quarter: 2007Q3

REPORT INFORMATION
  Report Type: 
  Country: None (occurrence: None)
  Receive Date: 20070918
  Receipt Date: 20061205
  Transmission Date: 20080115
  Serious: No
  Sender: FDA-Public Use
  Company Number: US-ASTRAZENECA-2006UW27066

PATIENT
  Sex: Female

DRUGS (4)
  1. SEROQUEL [Suspect]
     Route: 048
  2. HYDROXYZINE [Concomitant]
  3. LAMICTAL [Concomitant]
  4. PRENATAL VITAMINS [Concomitant]

REACTIONS (1)
  - DRUG SCREEN FALSE POSITIVE [None]
